FAERS Safety Report 5165695-6 (Version None)
Quarter: 2006Q4

REPORT INFORMATION
  Report Type: 
  Country: None (occurrence: None)
  Receive Date: 20061128
  Receipt Date: 20061115
  Transmission Date: 20070319
  Serious: Yes (Hospitalization, Other)
  Sender: FDA-Public Use
  Company Number: 2006143290

PATIENT
  Age: 59 Year
  Sex: Female

DRUGS (6)
  1. ZYVOX [Suspect]
     Indication: STAPHYLOCOCCAL INFECTION
     Dosage: 1200 MG INTRAVENOUS
     Route: 042
     Dates: start: 20061030, end: 20061103
  2. DEPAS                                       (ETIZOLAM) [Concomitant]
  3. ZOLPIDEM TARTRATE [Concomitant]
  4. VOLTAREN [Concomitant]
  5. LOXONIN       (LOXOPROFEN SODIUM) [Concomitant]
  6. HABEKACIN (ARBEKACIN) [Concomitant]

REACTIONS (2)
  - ANAEMIA [None]
  - HYPERKALAEMIA [None]
